FAERS Safety Report 8919507 (Version 2)
Quarter: 2014Q1

REPORT INFORMATION
  Report Type: Spontaneous
  Country: US (occurrence: US)
  Receive Date: 20121121
  Receipt Date: 20140115
  Transmission Date: 20141002
  Serious: Yes (Hospitalization, Other)
  Sender: FDA-Public Use
  Company Number: US-BAYER-2012-120585

PATIENT
  Age: 21 Year
  Sex: Female

DRUGS (5)
  1. YAZ [Suspect]
     Dosage: UNK
     Dates: start: 200310, end: 200510
  2. YASMIN [Suspect]
     Dosage: UNK
     Dates: start: 200310, end: 200510
  3. OCELLA [Suspect]
     Dosage: UNK
     Dates: start: 200310, end: 200510
  4. WELLBUTRIN [Concomitant]
     Dosage: 150 MG, UNK
  5. PAROXETINE [Concomitant]
     Dosage: 20 MG, UNK

REACTIONS (8)
  - Biliary dyskinesia [None]
  - Gallbladder disorder [None]
  - Pain [None]
  - Injury [None]
  - General physical health deterioration [None]
  - Anxiety [None]
  - Emotional distress [None]
  - Pain [None]
